FAERS Safety Report 8763919 (Version 2)
Quarter: 2012Q4

REPORT INFORMATION
  Report Type: 
  Country: US (occurrence: US)
  Receive Date: 20120827
  Receipt Date: 20120928
  Transmission Date: 20130627
  Serious: Yes (Hospitalization, Other)
  Sender: FDA-Public Use
  Company Number: US-ELI_LILLY_AND_COMPANY-US201208007295

PATIENT
  Sex: Female
  Weight: 53.97 kg

DRUGS (1)
  1. FORTEO [Suspect]
     Dosage: 20 ug, qd
     Route: 058
     Dates: start: 20110902

REACTIONS (2)
  - Angina pectoris [Recovered/Resolved]
  - Coronary artery disease [Recovered/Resolved]
